FAERS Safety Report 25808709 (Version 1)
Quarter: 2025Q3

REPORT INFORMATION
  Report Type: Spontaneous
  Country: US (occurrence: None)
  Receive Date: 20250915
  Receipt Date: 20250915
  Transmission Date: 20251021
  Serious: Yes (Congenital Anomaly)
  Sender: FDA-CTU
  Company Number: None

PATIENT
  Age: 0 Year
  Sex: Male
  Weight: 4.08 kg

DRUGS (1)
  1. STELARA [Suspect]
     Active Substance: USTEKINUMAB
     Indication: Crohn^s disease
     Route: 058
     Dates: start: 20241223, end: 20250729

REACTIONS (4)
  - Exposure during pregnancy [None]
  - Maternal drugs affecting foetus [None]
  - Polydactyly [None]
  - Congenital anomaly [None]

NARRATIVE: CASE EVENT DATE: 20250909
